FAERS Safety Report 5752461-3 (Version None)
Quarter: 2008Q2

REPORT INFORMATION
  Report Type: 
  Country: None (occurrence: None)
  Receive Date: 20080527
  Receipt Date: 20080527
  Transmission Date: 20081010
  Serious: No
  Sender: FDA-Public Use
  Company Number: None

PATIENT
  Age: 50 Year
  Sex: Male
  Weight: 100.2449 kg

DRUGS (5)
  1. BYETTA [Suspect]
     Indication: TYPE 2 DIABETES MELLITUS
     Dosage: 10MG SQ QID
     Route: 058
     Dates: start: 20071212, end: 20080522
  2. LISINOPRIL [Concomitant]
  3. METFORMIN HCL [Concomitant]
  4. ZOCOR [Concomitant]
  5. AMARYL [Concomitant]

REACTIONS (3)
  - INJECTION SITE ERYTHEMA [None]
  - NONSPECIFIC REACTION [None]
  - PRURITUS [None]
